FAERS Safety Report 20766712 (Version 1)
Quarter: 2022Q2

REPORT INFORMATION
  Report Type: Spontaneous
  Country: US (occurrence: US)
  Receive Date: 20220429
  Receipt Date: 20220429
  Transmission Date: 20220721
  Serious: No
  Sender: FDA-Public Use
  Company Number: US-SA-SAC20220422000462

PATIENT
  Sex: Male
  Weight: 230 kg

DRUGS (14)
  1. DUPILUMAB [Suspect]
     Active Substance: DUPILUMAB
     Dosage: UNK
     Dates: start: 20220217
  2. AZELASTINE [Concomitant]
     Active Substance: AZELASTINE
     Dosage: UNK UNK, BID
     Dates: start: 20220118
  3. DEXAMETHASONE [Concomitant]
     Active Substance: DEXAMETHASONE
     Dosage: 20 MG
     Route: 030
     Dates: start: 20220120
  4. DEXAMETHASONE [Concomitant]
     Active Substance: DEXAMETHASONE
     Dosage: 8 UNK
     Route: 030
  5. DULOXETINE [Concomitant]
     Active Substance: DULOXETINE
     Dosage: UNK, ONE CAPSULE BY MOUTH AT BED TIME
     Dates: start: 20220114
  6. GABAPENTIN [Concomitant]
     Active Substance: GABAPENTIN
     Dosage: UNK UNK, TID
     Route: 048
     Dates: start: 20220114
  7. IPRATROPIUM [Concomitant]
     Active Substance: IPRATROPIUM
     Dosage: UNK, Q4H
     Route: 055
     Dates: start: 20210721
  8. OXYCODONE [Concomitant]
     Active Substance: OXYCODONE
     Dosage: UNK UNK, BID
     Route: 048
     Dates: start: 20220118
  9. PREDNISONE [Concomitant]
     Active Substance: PREDNISONE
     Dosage: 2 DF, BID
     Route: 048
     Dates: start: 20220118
  10. SILDENAFIL [Concomitant]
     Active Substance: SILDENAFIL
     Dosage: 1 DF, PRN
     Route: 048
     Dates: start: 20210927
  11. TRELEGY ELLIPTA [Concomitant]
     Active Substance: FLUTICASONE FUROATE\UMECLIDINIUM BROMIDE\VILANTEROL TRIFENATATE
     Dosage: UNK UNK, QD
     Route: 055
     Dates: start: 20210506
  12. VALSARTAN [Concomitant]
     Active Substance: VALSARTAN
     Indication: Blood pressure measurement
     Dosage: UNK UNK, QD
     Route: 048
     Dates: start: 20210821
  13. XHANCE [Concomitant]
     Active Substance: FLUTICASONE PROPIONATE
     Dosage: UNK UNK, BID
     Dates: start: 20220118
  14. ZOLPIDEM [Concomitant]
     Active Substance: ZOLPIDEM TARTRATE
     Dosage: UNK UNK, QD (BED TIME)
     Route: 048
     Dates: start: 20220114

REACTIONS (9)
  - Wheezing [Unknown]
  - Cough [Unknown]
  - Asthma [Recovering/Resolving]
  - Chest discomfort [Not Recovered/Not Resolved]
  - Dyspnoea [Unknown]
  - Insomnia [Unknown]
  - Respiratory symptom [Unknown]
  - Gait disturbance [Unknown]
  - Nasal congestion [Unknown]

NARRATIVE: CASE EVENT DATE: 20220401
